FAERS Safety Report 19661576 (Version 2)
Quarter: 2021Q3

REPORT INFORMATION
  Report Type: Report from Study
  Country: GB (occurrence: GB)
  Receive Date: 20210805
  Receipt Date: 20210908
  Transmission Date: 20211014
  Serious: Yes (Disabling)
  Sender: FDA-Public Use
  Company Number: GB-PFIZER INC-202100961487

PATIENT
  Age: 53 Year
  Sex: Female

DRUGS (3)
  1. DAUNORUBICIN [Suspect]
     Active Substance: DAUNORUBICIN
     Dosage: UNK
     Dates: start: 20210703, end: 20210712
  2. CYTARABINE. [Suspect]
     Active Substance: CYTARABINE
     Dosage: UNK
     Dates: start: 20210703, end: 20210712
  3. MYLOTARG [Suspect]
     Active Substance: GEMTUZUMAB OZOGAMICIN
     Dosage: 3 MG/M2 INTRAVENOUS INFUSION OVER A 2 HOUR PERIOD
     Route: 042
     Dates: start: 20210707, end: 20210707

REACTIONS (1)
  - Hypertension [Not Recovered/Not Resolved]

NARRATIVE: CASE EVENT DATE: 20210715
